FAERS Safety Report 23809901 (Version 1)
Quarter: 2024Q2

REPORT INFORMATION
  Report Type: Spontaneous
  Country: CN (occurrence: CN)
  Receive Date: 20240502
  Receipt Date: 20240502
  Transmission Date: 20240715
  Serious: Yes (Hospitalization, Other)
  Sender: FDA-Public Use
  Company Number: CN-002147023-NVSC2024CN091458

PATIENT
  Age: 67 Year
  Sex: Male
  Weight: 55 kg

DRUGS (4)
  1. SACUBITRIL\VALSARTAN [Suspect]
     Active Substance: SACUBITRIL\VALSARTAN
     Indication: Blood pressure increased
     Dosage: 100 MG, BID
     Route: 048
     Dates: start: 20240310, end: 20240319
  2. NIFEDIPINE [Suspect]
     Active Substance: NIFEDIPINE
     Indication: Blood pressure increased
     Dosage: 30 MG, QD (CONTROLLED RELEASED TABLETS)
     Route: 048
     Dates: start: 20240310, end: 20240319
  3. NIFEDIPINE [Suspect]
     Active Substance: NIFEDIPINE
     Dosage: 30 MG, QD
     Route: 065
     Dates: start: 20240324
  4. RITONAVIR [Concomitant]
     Active Substance: RITONAVIR
     Indication: Antiviral treatment
     Dosage: 3 DOSAGE FORM, BID
     Route: 048
     Dates: start: 20240317, end: 20240320

REACTIONS (3)
  - Acute kidney injury [Recovering/Resolving]
  - Hypotension [Recovering/Resolving]
  - Hypertension [Unknown]

NARRATIVE: CASE EVENT DATE: 20240318
